FAERS Safety Report 8483006-5 (Version None)
Quarter: 2012Q3

REPORT INFORMATION
  Report Type: 
  Country: None (occurrence: None)
  Receive Date: 20120702
  Receipt Date: 20120626
  Transmission Date: 20120928
  Serious: Yes (Hospitalization)
  Sender: FDA-Public Use
  Company Number: FR-EISAI INC-E7389-02527-CLI-FR

PATIENT
  Sex: Male
  Weight: 50 kg

DRUGS (1)
  1. EPIRUBICIN HYDROCHLORIDE [Suspect]
     Indication: NON-SMALL CELL LUNG CANCER
     Route: 041
     Dates: start: 20120515, end: 20120608

REACTIONS (3)
  - HYPERCALCAEMIA [None]
  - NEUTROPENIA [None]
  - LEUKOPENIA [None]
